FAERS Safety Report 12918330 (Version 1)
Quarter: 2016Q4

REPORT INFORMATION
  Report Type: Spontaneous
  Country: US (occurrence: US)
  Receive Date: 20161107
  Receipt Date: 20161107
  Transmission Date: 20170207
  Serious: No
  Sender: FDA-Public Use
  Company Number: US-TAIHO ONCOLOGY INC-EU-2016-02848

PATIENT
  Sex: Male

DRUGS (6)
  1. LONSURF [Suspect]
     Active Substance: TIPIRACIL HYDROCHLORIDE\TRIFLURIDINE
     Indication: COLON CANCER
     Route: 048
     Dates: start: 201606, end: 2016
  2. TRAZODONE [Concomitant]
     Active Substance: TRAZODONE HYDROCHLORIDE
     Dates: start: 201606
  3. TAMSULOSIN [Concomitant]
     Active Substance: TAMSULOSIN
     Dates: start: 201606
  4. GLIMEPIRIDE. [Concomitant]
     Active Substance: GLIMEPIRIDE
     Dates: start: 201606
  5. PRAVASTATIN. [Concomitant]
     Active Substance: PRAVASTATIN
     Dates: start: 201606
  6. JANUMET [Concomitant]
     Active Substance: METFORMIN HYDROCHLORIDE\SITAGLIPTIN PHOSPHATE
     Dates: start: 201606

REACTIONS (1)
  - Blood count abnormal [Unknown]

NARRATIVE: CASE EVENT DATE: 2016
